FAERS Safety Report 7461427-7 (Version None)
Quarter: 2011Q2

REPORT INFORMATION
  Report Type: 
  Country: None (occurrence: None)
  Receive Date: 20110428
  Receipt Date: 20110414
  Transmission Date: 20111010
  Serious: Yes (Other)
  Sender: FDA-Public Use
  Company Number: 2011AP000735

PATIENT
  Age: 78 Year
  Sex: Female

DRUGS (2)
  1. LATANOPROST [Suspect]
     Indication: GLAUCOMA
     Dosage: 1GTT, QD, OPH
     Route: 047
     Dates: start: 20110301
  2. LATANOPROST [Concomitant]

REACTIONS (5)
  - DRY EYE [None]
  - PRODUCT SUBSTITUTION ISSUE [None]
  - EYE SWELLING [None]
  - EYE DISORDER [None]
  - HYPOACUSIS [None]
